FAERS Safety Report 14831669 (Version 1)
Quarter: 2018Q2

REPORT INFORMATION
  Report Type: Spontaneous
  Country: US (occurrence: US)
  Receive Date: 20180501
  Receipt Date: 20180501
  Transmission Date: 20180711
  Serious: No
  Sender: FDA-Public Use
  Company Number: US-UNICHEM PHARMACEUTICALS (USA) INC-UCM201803-000075

PATIENT
  Sex: Female

DRUGS (1)
  1. METRONIDAZOLE 250 MG TABLET [Suspect]
     Active Substance: METRONIDAZOLE

REACTIONS (1)
  - Wrong technique in product usage process [Unknown]
